FAERS Safety Report 8189893-2 (Version None)
Quarter: 2012Q1

REPORT INFORMATION
  Report Type: 
  Country: None (occurrence: None)
  Receive Date: 20120307
  Receipt Date: 20120228
  Transmission Date: 20120608
  Serious: Yes (Hospitalization)
  Sender: FDA-Public Use
  Company Number: NL-JNJFOC-20120214305

PATIENT
  Sex: Female
  Weight: 91 kg

DRUGS (22)
  1. CYCLOPHOSPHAMIDE [Suspect]
     Indication: DIFFUSE LARGE B-CELL LYMPHOMA
     Route: 042
     Dates: start: 20111003
  2. THYROX [Concomitant]
     Route: 065
  3. FLUTICASONE PROPIONATE [Concomitant]
     Route: 065
  4. NEUPOGEN [Suspect]
     Indication: DIFFUSE LARGE B-CELL LYMPHOMA
     Route: 058
     Dates: start: 20111004
  5. HALOPERIDOL [Concomitant]
     Route: 065
  6. RITUXIMAB [Suspect]
     Indication: DIFFUSE LARGE B-CELL LYMPHOMA
     Route: 042
     Dates: start: 20111003
  7. OMEPRAZOLE [Concomitant]
     Route: 065
  8. VITAMIN B COMPLEX CAP [Concomitant]
     Route: 065
  9. DOXORUBICIN HCL [Suspect]
     Indication: DIFFUSE LARGE B-CELL LYMPHOMA
     Route: 042
     Dates: start: 20111003
  10. MULTI-VITAMINS [Concomitant]
     Route: 065
  11. LORAZEPAM [Concomitant]
     Route: 065
  12. VINCRISTINE [Suspect]
     Indication: DIFFUSE LARGE B-CELL LYMPHOMA
     Route: 042
     Dates: start: 20111003
  13. CONTRIMOXAZOLE [Concomitant]
     Route: 065
  14. VALACICLOVIR [Concomitant]
     Route: 065
  15. FLUVOXAMINE MALEATE [Concomitant]
     Route: 065
  16. ASCORBIC ACID [Concomitant]
     Route: 065
  17. ONDANSETRON [Concomitant]
     Route: 065
  18. FLUNITRAZEPAM [Concomitant]
     Route: 065
  19. ACETAMINOPHEN [Concomitant]
     Route: 065
  20. PREDNISONE TAB [Suspect]
     Indication: DIFFUSE LARGE B-CELL LYMPHOMA
     Route: 048
     Dates: start: 20111003
  21. METOCLOPRAMIDE [Concomitant]
     Route: 065
  22. NEULASTA [Concomitant]
     Route: 065

REACTIONS (3)
  - NAUSEA [None]
  - RESTLESSNESS [None]
  - MALAISE [None]
